FAERS Safety Report 17981337 (Version 2)
Quarter: 2020Q3

REPORT INFORMATION
  Report Type: Spontaneous
  Country: NL (occurrence: NL)
  Receive Date: 20200705
  Receipt Date: 20200831
  Transmission Date: 20201103
  Serious: Yes (Hospitalization, Disabling)
  Sender: FDA-Public Use
  Company Number: NVSC2020NL184066

PATIENT
  Age: 50 Year
  Sex: Female
  Weight: 75 kg

DRUGS (9)
  1. AMIODARON HCL SANDOZ 200 MG, TABLETTEN [Suspect]
     Active Substance: AMIODARONE HYDROCHLORIDE
     Indication: HYPERTENSION
     Dosage: 200 MG, QD
     Route: 065
     Dates: start: 202004
  2. VENLAFAXINE [Suspect]
     Active Substance: VENLAFAXINE HYDROCHLORIDE
     Indication: DEPRESSION
     Dosage: 150 MG, QD (1 KEER PER DAG 1 STUK) (STRENGTH: 150 MG)
     Route: 048
     Dates: start: 20130131, end: 20130213
  3. VENLAFAXINE [Suspect]
     Active Substance: VENLAFAXINE HYDROCHLORIDE
     Dosage: 75 MG, QD
     Route: 065
     Dates: start: 20130131, end: 2013
  4. AMIODARON HCL SANDOZ 200 MG, TABLETTEN [Suspect]
     Active Substance: AMIODARONE HYDROCHLORIDE
     Indication: ARRHYTHMIA
  5. LIXIANA [Suspect]
     Active Substance: EDOXABAN TOSYLATE
     Indication: ARRHYTHMIA
     Dosage: 60 MG, QD
     Route: 065
     Dates: start: 202004
  6. ASCAL [Concomitant]
     Indication: PRODUCT USED FOR UNKNOWN INDICATION
     Dosage: 80 MG, UNK
     Route: 048
  7. LIXIANA [Suspect]
     Active Substance: EDOXABAN TOSYLATE
     Indication: HYPERTENSION
  8. LOSARTAN. [Suspect]
     Active Substance: LOSARTAN
     Indication: HYPERTENSION
     Dosage: 50 MG, QD
     Route: 065
     Dates: start: 202004
  9. LOSARTAN. [Suspect]
     Active Substance: LOSARTAN
     Indication: ARRHYTHMIA

REACTIONS (7)
  - Decreased appetite [Recovering/Resolving]
  - Gastrointestinal pain [Recovering/Resolving]
  - Crying [Recovered/Resolved with Sequelae]
  - Anxiety [Recovered/Resolved with Sequelae]
  - Insomnia [Recovering/Resolving]
  - Suicidal ideation [Recovered/Resolved with Sequelae]
  - Headache [Unknown]

NARRATIVE: CASE EVENT DATE: 20130204
